FAERS Safety Report 5910281-0 (Version None)
Quarter: 2008Q4

REPORT INFORMATION
  Report Type: 
  Country: None (occurrence: None)
  Receive Date: 20081007
  Receipt Date: 20080819
  Transmission Date: 20090506
  Serious: No
  Sender: FDA-Public Use
  Company Number: A0743292A

PATIENT
  Age: 64 Year
  Sex: Female

DRUGS (3)
  1. ADVAIR DISKUS 100/50 [Suspect]
     Indication: ASTHMA
     Dosage: 1PUFF PER DAY
     Route: 055
  2. CLARINEX [Concomitant]
  3. SINGULAIR [Concomitant]

REACTIONS (1)
  - THROAT IRRITATION [None]
